FAERS Safety Report 12713364 (Version 2)
Quarter: 2016Q3

REPORT INFORMATION
  Report Type: Spontaneous
  Country: US (occurrence: US)
  Receive Date: 20160902
  Receipt Date: 20160913
  Transmission Date: 20161109
  Serious: No
  Sender: FDA-Public Use
  Company Number: US-ASTRAZENECA-2016SE90170

PATIENT
  Age: 580 Month
  Sex: Female
  Weight: 117.9 kg

DRUGS (2)
  1. BYDUREON [Suspect]
     Active Substance: EXENATIDE
     Indication: TYPE 2 DIABETES MELLITUS
     Dosage: PEN, 2 MG WEEKLY
     Route: 058
     Dates: start: 201605
  2. BYDUREON [Suspect]
     Active Substance: EXENATIDE
     Indication: TYPE 2 DIABETES MELLITUS
     Dosage: SINGLE DOSE TRAY, 2 MG WEEKLY
     Route: 058
     Dates: end: 201605

REACTIONS (5)
  - Product substitution issue [Unknown]
  - Needle issue [Unknown]
  - Blood glucose increased [Unknown]
  - Underdose [Unknown]
  - Hypertension [Unknown]

NARRATIVE: CASE EVENT DATE: 201605
